FAERS Safety Report 15098687 (Version 1)
Quarter: 2018Q3

REPORT INFORMATION
  Report Type: Report from Study
  Country: US (occurrence: US)
  Receive Date: 20180702
  Receipt Date: 20180702
  Transmission Date: 20181010
  Serious: Yes (Hospitalization, Other)
  Sender: FDA-Public Use
  Company Number: US-GILEAD-2018-0347932

PATIENT
  Age: 68 Year
  Sex: Male

DRUGS (4)
  1. AMBRISENTAN [Suspect]
     Active Substance: AMBRISENTAN
     Indication: COR PULMONALE
     Dosage: 5 MG, QD
     Route: 065
     Dates: start: 20171209
  2. DELTASONE                          /00016001/ [Concomitant]
     Active Substance: DEXAMETHASONE
     Dates: start: 20180504
  3. DAPSONE. [Concomitant]
     Active Substance: DAPSONE
     Dates: start: 20180504
  4. OMEPRAZOLE. [Concomitant]
     Active Substance: OMEPRAZOLE
     Dates: start: 20180504

REACTIONS (1)
  - Hip fracture [Unknown]

NARRATIVE: CASE EVENT DATE: 20180621
